FAERS Safety Report 19067620 (Version 2)
Quarter: 2021Q2

REPORT INFORMATION
  Report Type: Report from Study
  Country: CA (occurrence: CA)
  Receive Date: 20210329
  Receipt Date: 20210628
  Transmission Date: 20210717
  Serious: Yes (Other)
  Sender: FDA-Public Use
  Company Number: CA-BIOGEN-2021BI00994570

PATIENT
  Age: 49 Year
  Sex: Female

DRUGS (2)
  1. PLEGRIDY [Suspect]
     Active Substance: PEGINTERFERON BETA-1A
     Indication: MULTIPLE SCLEROSIS
     Route: 058
     Dates: start: 20160613, end: 20210317
  2. PLEGRIDY [Suspect]
     Active Substance: PEGINTERFERON BETA-1A
     Route: 058
     Dates: end: 202104

REACTIONS (7)
  - Motor dysfunction [Unknown]
  - Myalgia [Unknown]
  - Paralysis [Unknown]
  - Pyrexia [Unknown]
  - Chills [Unknown]
  - Crying [Unknown]
  - Oral herpes [Unknown]

NARRATIVE: CASE EVENT DATE: 20210317
